FAERS Safety Report 9137068 (Version 1)
Quarter: 2013Q1

REPORT INFORMATION
  Report Type: Report from Study
  Country: GB (occurrence: GB)
  Receive Date: 20130304
  Receipt Date: 20130304
  Transmission Date: 20140127
  Serious: Yes (Other)
  Sender: FDA-Public Use
  Company Number: GB-ASTRAZENECA-2013SE12725

PATIENT
  Age: 25661 Day
  Sex: Male
  Weight: 76.4 kg

DRUGS (6)
  1. VANDETANIB [Suspect]
     Indication: PANCREATIC CARCINOMA
     Route: 048
     Dates: start: 20111215, end: 20130116
  2. GEMCITABINE [Suspect]
     Indication: PANCREATIC CARCINOMA
     Route: 042
     Dates: start: 20111215, end: 20130116
  3. LANSOPRAZOLE [Concomitant]
     Indication: DYSPEPSIA
     Route: 048
  4. CREON [Concomitant]
     Indication: ENZYME SUPPLEMENTATION
     Route: 048
     Dates: start: 20110615
  5. LISINOPRIL [Concomitant]
     Indication: HYPERTENSION
     Route: 048
     Dates: start: 20121014
  6. LERCANIDIPINE [Concomitant]
     Indication: HYPERTENSION
     Route: 048
     Dates: start: 20121010

REACTIONS (1)
  - Renal failure acute [Not Recovered/Not Resolved]
